FAERS Safety Report 21696883 (Version 2)
Quarter: 2022Q4

REPORT INFORMATION
  Report Type: Report from Study
  Country: KR (occurrence: KR)
  Receive Date: 20221208
  Receipt Date: 20221213
  Transmission Date: 20230112
  Serious: Yes (Hospitalization, Other)
  Sender: FDA-Public Use
  Company Number: KR-BRISTOL-MYERS SQUIBB COMPANY-2022-147936

PATIENT
  Age: 66 Year
  Sex: Male
  Weight: 72.2 kg

DRUGS (33)
  1. DEXAMETHASONE [Suspect]
     Active Substance: DEXAMETHASONE
     Indication: Plasma cell myeloma
     Dosage: C1D1 (40 MG)
     Route: 048
     Dates: start: 20220908
  2. DEXAMETHASONE [Suspect]
     Active Substance: DEXAMETHASONE
     Dosage: C1D8
     Route: 048
     Dates: start: 20220915
  3. DEXAMETHASONE [Suspect]
     Active Substance: DEXAMETHASONE
     Dosage: C1D15
     Route: 048
     Dates: start: 20220922
  4. DEXAMETHASONE [Suspect]
     Active Substance: DEXAMETHASONE
     Dosage: C1D22
     Route: 048
     Dates: start: 20220929
  5. DEXAMETHASONE [Suspect]
     Active Substance: DEXAMETHASONE
     Dosage: C2D1
     Route: 048
     Dates: start: 20221006
  6. DEXAMETHASONE [Suspect]
     Active Substance: DEXAMETHASONE
     Dosage: C2D8
     Route: 048
     Dates: start: 20221013
  7. DEXAMETHASONE [Suspect]
     Active Substance: DEXAMETHASONE
     Dosage: C2D15
     Route: 048
     Dates: start: 20221020
  8. DEXAMETHASONE [Suspect]
     Active Substance: DEXAMETHASONE
     Dosage: C2D22
     Route: 048
     Dates: start: 20221027
  9. DEXAMETHASONE [Suspect]
     Active Substance: DEXAMETHASONE
     Dosage: C3D1
     Route: 048
     Dates: start: 20221103
  10. DEXAMETHASONE [Suspect]
     Active Substance: DEXAMETHASONE
     Dosage: C3D15
     Route: 048
     Dates: start: 20221117
  11. POMALIDOMIDE [Suspect]
     Active Substance: POMALIDOMIDE
     Indication: Plasma cell myeloma
     Route: 048
     Dates: start: 20220908, end: 20221026
  12. POMALIDOMIDE [Suspect]
     Active Substance: POMALIDOMIDE
     Route: 048
     Dates: end: 20221116
  13. DARATUMUMAB [Suspect]
     Active Substance: DARATUMUMAB
     Indication: Plasma cell myeloma
     Dosage: 1800 MG, C1D1 (15 ML)
     Route: 058
     Dates: start: 20220908
  14. DARATUMUMAB [Suspect]
     Active Substance: DARATUMUMAB
     Dosage: C1D8
     Route: 058
     Dates: start: 20220915
  15. DARATUMUMAB [Suspect]
     Active Substance: DARATUMUMAB
     Dosage: C1D15
     Route: 058
     Dates: start: 20220922
  16. DARATUMUMAB [Suspect]
     Active Substance: DARATUMUMAB
     Dosage: C1D22
     Route: 058
     Dates: start: 20220929
  17. DARATUMUMAB [Suspect]
     Active Substance: DARATUMUMAB
     Dosage: C2D1
     Route: 058
     Dates: start: 20221006
  18. DARATUMUMAB [Suspect]
     Active Substance: DARATUMUMAB
     Dosage: C2D8
     Route: 058
     Dates: start: 20221013
  19. DARATUMUMAB [Suspect]
     Active Substance: DARATUMUMAB
     Dosage: C2D15
     Route: 058
     Dates: start: 20221020
  20. DARATUMUMAB [Suspect]
     Active Substance: DARATUMUMAB
     Dosage: C2D22
     Route: 058
     Dates: start: 20221027
  21. DARATUMUMAB [Suspect]
     Active Substance: DARATUMUMAB
     Dosage: C3D1
     Route: 058
     Dates: start: 20221103
  22. DARATUMUMAB [Suspect]
     Active Substance: DARATUMUMAB
     Dosage: C3D15
     Route: 058
     Dates: start: 20221117
  23. LYRICA [Concomitant]
     Active Substance: PREGABALIN
     Indication: Prophylaxis
     Dosage: 300 MG (150 MG,1 IN 0.5 D)
     Route: 048
     Dates: start: 20180208
  24. CALTEO [Concomitant]
     Indication: Prophylaxis
     Dosage: 1 DOSAGE FORMS (1 DOSAGE FORMS,1 IN 1 D)
     Route: 048
     Dates: start: 20180826
  25. FOLIC ACID [Concomitant]
     Active Substance: FOLIC ACID
     Indication: Prophylaxis
     Route: 048
     Dates: start: 20190404
  26. IMPACTAMIN POWER [Concomitant]
     Indication: Nutritional supplementation
     Route: 048
     Dates: start: 20210819
  27. TRASPEN [Concomitant]
     Indication: Pain management
     Route: 048
     Dates: start: 20211111
  28. TRASPEN [Concomitant]
     Route: 048
     Dates: start: 20211125, end: 20221130
  29. PHAZYME [Concomitant]
     Active Substance: DIMETHICONE 410
     Indication: Dyspepsia
     Route: 048
     Dates: start: 20220929
  30. ASPIRIN [Concomitant]
     Active Substance: ASPIRIN
     Indication: Prophylaxis
     Route: 048
     Dates: start: 20221006
  31. LAMINA-G [Concomitant]
     Indication: Epigastric discomfort
     Route: 048
     Dates: start: 20221020
  32. LANSOPRAZOLE [Concomitant]
     Active Substance: LANSOPRAZOLE
     Indication: Epigastric discomfort
     Dosage: 15 MG (15 MG,1 IN 1 D)
     Route: 048
     Dates: start: 20221020
  33. PLATELETS [Concomitant]
     Active Substance: HUMAN PLATELET, ALLOGENIC
     Indication: Thrombocytopenia
     Route: 042
     Dates: start: 20221117, end: 20221117

REACTIONS (1)
  - Pneumonia aspiration [Not Recovered/Not Resolved]

NARRATIVE: CASE EVENT DATE: 20221120
